FAERS Safety Report 10940060 (Version 2)
Quarter: 2015Q2

REPORT INFORMATION
  Report Type: Spontaneous
  Country: US (occurrence: US)
  Receive Date: 20150322
  Receipt Date: 20150525
  Transmission Date: 20150821
  Serious: No
  Sender: FDA-Public Use
  Company Number: US-JNJFOC-20150100467

PATIENT
  Sex: Male
  Weight: 74.84 kg

DRUGS (2)
  1. NUCYNTA [Suspect]
     Active Substance: TAPENTADOL HYDROCHLORIDE
     Indication: PAIN
     Dosage: TWICE A DAY
     Route: 048
     Dates: start: 2014
  2. NUCYNTA ER [Suspect]
     Active Substance: TAPENTADOL HYDROCHLORIDE
     Indication: BREAKTHROUGH PAIN
     Dosage: AS NEEDED
     Route: 048
     Dates: start: 2014

REACTIONS (1)
  - Breakthrough pain [Unknown]

NARRATIVE: CASE EVENT DATE: 20141230
